FAERS Safety Report 24327762 (Version 1)
Quarter: 2024Q3

REPORT INFORMATION
  Report Type: Spontaneous
  Country: CN (occurrence: CN)
  Receive Date: 20240917
  Receipt Date: 20240917
  Transmission Date: 20241016
  Serious: Yes (Other)
  Sender: PFIZER
  Company Number: CN-PFIZER INC-PV202400120850

PATIENT
  Age: 59 Year
  Sex: Female
  Weight: 59 kg

DRUGS (2)
  1. EPIRUBICIN HYDROCHLORIDE [Suspect]
     Active Substance: EPIRUBICIN HYDROCHLORIDE
     Indication: Chemotherapy
     Dosage: 130 MG, 1X/DAY
     Route: 041
     Dates: start: 20240807, end: 20240807
  2. CYCLOPHOSPHAMIDE [Suspect]
     Active Substance: CYCLOPHOSPHAMIDE
     Indication: Chemotherapy
     Dosage: 0.85 G, 1X/DAY
     Route: 041
     Dates: start: 20240807, end: 20240807

REACTIONS (3)
  - Hepatic function abnormal [Recovering/Resolving]
  - Asthenia [Unknown]
  - Decreased appetite [Unknown]

NARRATIVE: CASE EVENT DATE: 20240801
